FAERS Safety Report 5241138-9 (Version None)
Quarter: 2007Q1

REPORT INFORMATION
  Report Type: 
  Country: None (occurrence: None)
  Receive Date: 20070220
  Receipt Date: 20070207
  Transmission Date: 20070707
  Serious: Yes (Hospitalization, Other)
  Sender: FDA-Public Use
  Company Number: CA-JNJFOC-20051203115

PATIENT
  Sex: Male

DRUGS (6)
  1. REMICADE [Suspect]
     Route: 042
  2. REMICADE [Suspect]
     Indication: CROHN'S DISEASE
     Route: 042
  3. FENTANYL TRANSDERMAL SYSTEM [Concomitant]
  4. LOSEC [Concomitant]
     Route: 048
  5. SALOFALK [Concomitant]
     Route: 048
  6. CELEXA [Concomitant]
     Route: 048

REACTIONS (1)
  - ANKLE OPERATION [None]
